FAERS Safety Report 22051638 (Version 1)
Quarter: 2023Q1

REPORT INFORMATION
  Report Type: Spontaneous
  Country: US (occurrence: US)
  Receive Date: 20230302
  Receipt Date: 20230302
  Transmission Date: 20230418
  Serious: No
  Sender: FDA-Public Use
  Company Number: US-VIIV HEALTHCARE LIMITED-US2023AMR030000

PATIENT
  Sex: Male

DRUGS (6)
  1. RILPIVIRINE [Suspect]
     Active Substance: RILPIVIRINE
     Indication: Product used for unknown indication
     Dosage: UNK FIRST INITIATION
     Route: 065
     Dates: start: 202301
  2. RILPIVIRINE [Suspect]
     Active Substance: RILPIVIRINE
     Dosage: UNK SECOND INITIATION
     Route: 065
     Dates: start: 202302
  3. CABOTEGRAVIR [Suspect]
     Active Substance: CABOTEGRAVIR
     Indication: Product used for unknown indication
     Dosage: UNK FIRST INITIATION
     Route: 065
     Dates: start: 202301
  4. CABOTEGRAVIR [Suspect]
     Active Substance: CABOTEGRAVIR
     Dosage: UNK SECOND INITIATION
     Route: 065
     Dates: start: 202302
  5. VOCABRIA [Concomitant]
     Active Substance: CABOTEGRAVIR SODIUM
     Indication: Product used for unknown indication
     Dosage: UNK
     Route: 048
  6. EDURANT [Concomitant]
     Active Substance: RILPIVIRINE HYDROCHLORIDE
     Indication: Product used for unknown indication
     Dosage: UNK
     Route: 048

REACTIONS (2)
  - Rash [Unknown]
  - Chest pain [Unknown]

NARRATIVE: CASE EVENT DATE: 20230201
